FAERS Safety Report 8606793 (Version 2)
Quarter: 2013Q2

REPORT INFORMATION
  Report Type: Spontaneous
  Country: US (occurrence: US)
  Receive Date: 20120611
  Receipt Date: 20130617
  Transmission Date: 20140414
  Serious: Yes (Disabling, Other)
  Sender: FDA-Public Use
  Company Number: US-ASTRAZENECA-2012SE35754

PATIENT
  Age: 18914 Day
  Sex: Female
  Weight: 95 kg

DRUGS (23)
  1. NEXIUM [Suspect]
     Indication: GASTROOESOPHAGEAL REFLUX DISEASE
     Route: 048
  2. NEXIUM [Suspect]
     Indication: GASTROOESOPHAGEAL REFLUX DISEASE
     Route: 048
     Dates: start: 20050110, end: 20100103
  3. NEXIUM [Suspect]
     Indication: GASTROOESOPHAGEAL REFLUX DISEASE
     Route: 048
     Dates: start: 20091203
  4. OMEPRAZOLE [Suspect]
     Indication: ANTACID THERAPY
     Dosage: FOR A MONTH OR TWO
     Route: 048
  5. PEPTO BISMOL [Concomitant]
  6. RAVEAL [Concomitant]
     Indication: NASAL CONGESTION
     Route: 045
  7. LYRICA [Concomitant]
     Indication: NEURALGIA
  8. PROBIOTICS REXELL [Concomitant]
     Indication: MEDICAL DIET
  9. CO Q10 [Concomitant]
     Indication: CARDIAC DISORDER
  10. GABAPENTIN [Concomitant]
     Indication: PAIN
  11. FLEXERIL [Concomitant]
     Indication: MUSCLE RELAXANT THERAPY
  12. PHENERGAN [Concomitant]
     Indication: NAUSEA
  13. MULTI VITAMINS [Concomitant]
  14. BENTYL [Concomitant]
  15. SUCRALFATE [Concomitant]
     Indication: ANTACID THERAPY
  16. CALCIUM [Concomitant]
     Indication: BONE DISORDER
  17. MAGNESIUM [Concomitant]
     Indication: BONE DISORDER
  18. ZINC [Concomitant]
     Indication: BONE DISORDER
  19. OMEGA 3.6.9 [Concomitant]
     Indication: CARDIAC DISORDER
  20. ZOFRAN [Concomitant]
     Indication: NAUSEA
  21. ZOFRAN [Concomitant]
     Indication: VOMITING
  22. TOPOMAX [Concomitant]
     Indication: MIGRAINE
  23. EFFEXOR [Concomitant]

REACTIONS (12)
  - Osteoporosis [Unknown]
  - Chronic obstructive pulmonary disease [Unknown]
  - Hyperlipidaemia [Unknown]
  - Hypertension [Unknown]
  - Neuropathy peripheral [Unknown]
  - Depression [Unknown]
  - Wrist fracture [Unknown]
  - Vitamin D deficiency [Unknown]
  - Joint injury [Unknown]
  - Contusion [Unknown]
  - Ankle fracture [Unknown]
  - Ligament sprain [Unknown]
